APPROVED DRUG PRODUCT: ACETAMINOPHEN, ASPIRIN, AND CODEINE PHOSPHATE
Active Ingredient: ACETAMINOPHEN; ASPIRIN; CODEINE PHOSPHATE
Strength: 150MG;180MG;60MG
Dosage Form/Route: CAPSULE;ORAL
Application: A081097 | Product #001
Applicant: MIKART LLC
Approved: Oct 26, 1990 | RLD: No | RS: No | Type: DISCN